FAERS Safety Report 20076747 (Version 1)
Quarter: 2021Q4

REPORT INFORMATION
  Report Type: Spontaneous
  Country: JP (occurrence: None)
  Receive Date: 20211116
  Receipt Date: 20211116
  Transmission Date: 20220303
  Serious: Yes (Other)
  Sender: FDA-Public Use
  Company Number: 2021A807556

PATIENT
  Age: 77 Year
  Sex: Female

DRUGS (6)
  1. GEFITINIB [Interacting]
     Active Substance: GEFITINIB
     Indication: Non-small cell lung cancer recurrent
     Route: 048
     Dates: end: 201907
  2. GEFITINIB [Interacting]
     Active Substance: GEFITINIB
     Indication: Non-small cell lung cancer recurrent
     Route: 048
  3. IMATINIB [Interacting]
     Active Substance: IMATINIB
     Route: 065
     Dates: start: 201904
  4. ERLOTINIB [Concomitant]
     Active Substance: ERLOTINIB
     Indication: Non-small cell lung cancer recurrent
     Route: 065
     Dates: start: 201907
  5. CARBOPLATIN [Concomitant]
     Active Substance: CARBOPLATIN
     Indication: Non-small cell lung cancer recurrent
     Route: 065
  6. DOCETAXEL [Concomitant]
     Active Substance: DOCETAXEL
     Indication: Non-small cell lung cancer recurrent
     Route: 065

REACTIONS (5)
  - Malignant neoplasm progression [Unknown]
  - EGFR gene mutation [Unknown]
  - Drug resistance [Unknown]
  - Diarrhoea [Unknown]
  - Drug interaction [Unknown]
